FAERS Safety Report 8888467 (Version 2)
Quarter: 2012Q4

REPORT INFORMATION
  Report Type: 
  Country: NL (occurrence: NL)
  Receive Date: 20121106
  Receipt Date: 20121129
  Transmission Date: 20130627
  Serious: Yes (Hospitalization)
  Sender: FDA-Public Use
  Company Number: PHHY2012NL101022

PATIENT
  Sex: Female
  Weight: 54 kg

DRUGS (16)
  1. ZOMETA [Suspect]
     Indication: MULTIPLE MYELOMA
     Dosage: 4 mg, / 100ml  once in 28 days
     Dates: start: 201202
  2. ZOMETA [Suspect]
     Dosage: 4 mg, / 100ml  once in 28 days
     Dates: start: 20120601
  3. ZOMETA [Suspect]
     Dosage: 4 mg, / 100ml  once in 28 days
     Dates: start: 20120629
  4. ZOMETA [Suspect]
     Dosage: 4 mg, / 100ml  once in 28 days
     Dates: start: 20120727
  5. PANTOZOL [Concomitant]
     Dosage: 40 mg, 1dd
  6. DOMPERDONE [Concomitant]
     Dosage: 10 mg, UNK
  7. NIFEDIPINE [Concomitant]
     Dosage: 30 mg, daily
     Dates: start: 201204
  8. MELFALAN//PREDNISON [Concomitant]
     Dosage: Melfalan 8mg / PREDNISON 80mg 1-5 once per 4 weeks
  9. THALIDOMIDE [Concomitant]
     Dosage: 50 mg, daily
  10. ASCAL [Concomitant]
     Dosage: 80 mg, daily
  11. CALCI CHEW D3 [Concomitant]
     Dosage: CALCIUM CARBONATE 500, COLECALCIFEROL 800
  12. LOSARTAN [Concomitant]
  13. IMMUNOSUPPRESSANTS [Concomitant]
  14. ANTINEOPLASTIC AGENTS [Concomitant]
  15. VITAMIN D3 [Concomitant]
  16. CALCIUM [Concomitant]

REACTIONS (3)
  - Angiopathy [Unknown]
  - Impaired healing [Recovering/Resolving]
  - Renal impairment [Not Recovered/Not Resolved]
